FAERS Safety Report 5600064-3 (Version None)
Quarter: 2007Q4

REPORT INFORMATION
  Report Type: 
  Country: None (occurrence: None)
  Receive Date: 20071226
  Receipt Date: 20070731
  Transmission Date: 20080405
  Serious: Yes (Disabling)
  Sender: FDA-Public Use
  Company Number: 2007-0012667

PATIENT
  Age: 43 Year
  Sex: Male
  Weight: 68.0396 kg

DRUGS (9)
  1. VIREAD [Suspect]
     Indication: HIV INFECTION
     Dosage: 300 MG, 1 IN 1 D, ORAL
     Route: 048
     Dates: start: 20030403, end: 20060330
  2. KALETRA (LOPINAVIR-) (CAPSULE) [Concomitant]
  3. ZIAGEN [Concomitant]
  4. DIFLUCAN [Concomitant]
  5. TRICOR (ADENOSINE) [Concomitant]
  6. ZETIA [Concomitant]
  7. COZAAR [Concomitant]
  8. VALIUM [Concomitant]
  9. TAGAMET [Concomitant]

REACTIONS (3)
  - FANCONI SYNDROME ACQUIRED [None]
  - HYPOKALAEMIA [None]
  - RENAL TUBULAR NECROSIS [None]
